FAERS Safety Report 19215311 (Version 1)
Quarter: 2021Q2

REPORT INFORMATION
  Report Type: Spontaneous
  Country: GB (occurrence: GB)
  Receive Date: 20210505
  Receipt Date: 20210505
  Transmission Date: 20210717
  Serious: Yes (Other)
  Sender: FDA-Public Use
  Company Number: GB-TEVA-2021-GB-1906447

PATIENT
  Age: 54 Year
  Sex: Male
  Weight: 85 kg

DRUGS (1)
  1. PREDNISOLONE. [Suspect]
     Active Substance: PREDNISOLONE
     Indication: IMMUNE THROMBOCYTOPENIA
     Dosage: 60 MILLIGRAM DAILY;

REACTIONS (4)
  - Haemorrhage [Not Recovered/Not Resolved]
  - Immune thrombocytopenia [Recovered/Resolved]
  - Petechiae [Not Recovered/Not Resolved]
  - Thrombocytopenia [Unknown]

NARRATIVE: CASE EVENT DATE: 20210329
